FAERS Safety Report 8014971-8 (Version None)
Quarter: 2011Q4

REPORT INFORMATION
  Report Type: 
  Country: None (occurrence: None)
  Receive Date: 20111230
  Receipt Date: 20111223
  Transmission Date: 20120403
  Serious: Yes (Hospitalization)
  Sender: FDA-Public Use
  Company Number: US-BIOGENIDEC-2011BI018563

PATIENT
  Age: 52 Year
  Sex: Female

DRUGS (2)
  1. TYSABRI [Suspect]
     Indication: MULTIPLE SCLEROSIS
     Route: 042
     Dates: start: 20050207, end: 20050207
  2. TYSABRI [Suspect]
     Route: 042
     Dates: start: 20070806

REACTIONS (7)
  - BURNING SENSATION [None]
  - MULTIPLE SCLEROSIS RELAPSE [None]
  - CONCUSSION [None]
  - BALANCE DISORDER [None]
  - FATIGUE [None]
  - FALL [None]
  - HEMIPARESIS [None]
